FAERS Safety Report 10722229 (Version 1)
Quarter: 2015Q1

REPORT INFORMATION
  Report Type: Spontaneous
  Country: FR (occurrence: FR)
  Receive Date: 20150119
  Receipt Date: 20150119
  Transmission Date: 20150721
  Serious: Yes (Life-Threatening)
  Sender: FDA-Public Use
  Company Number: FR-BRISTOL-MYERS SQUIBB COMPANY-BMS-2015-000539

PATIENT
  Age: 70 Year
  Sex: Female
  Weight: 63.5 kg

DRUGS (11)
  1. MOPRAL                             /00661201/ [Concomitant]
     Active Substance: OMEPRAZOLE SODIUM
  2. CELLUVISC                          /00007002/ [Concomitant]
  3. CHOLECALCIFEROL [Concomitant]
     Active Substance: CHOLECALCIFEROL
  4. ACTISKENAN [Concomitant]
     Active Substance: MORPHINE SULFATE
  5. BORIC ACID [Concomitant]
     Active Substance: BORIC ACID
  6. RAMIPRIL. [Concomitant]
     Active Substance: RAMIPRIL
  7. NEURONTIN [Concomitant]
     Active Substance: GABAPENTIN
  8. SEROPRAM                           /00582602/ [Concomitant]
  9. OXYCONTIN [Concomitant]
     Active Substance: OXYCODONE HYDROCHLORIDE
  10. TEMESTA                            /00273201/ [Concomitant]
     Active Substance: LORAZEPAM
  11. GLUCOPHAGE [Suspect]
     Active Substance: METFORMIN HYDROCHLORIDE
     Indication: TYPE 2 DIABETES MELLITUS
     Dosage: 2 G, BID
     Route: 048
     Dates: end: 20141216

REACTIONS (2)
  - Acute kidney injury [Recovered/Resolved]
  - Lactic acidosis [Recovered/Resolved]

NARRATIVE: CASE EVENT DATE: 20141216
